FAERS Safety Report 6296475-6 (Version None)
Quarter: 2009Q3

REPORT INFORMATION
  Report Type: 
  Country: None (occurrence: None)
  Receive Date: 20090804
  Receipt Date: 20090727
  Transmission Date: 20100115
  Serious: Yes (Other)
  Sender: FDA-Public Use
  Company Number: A0798833A

PATIENT
  Age: 71 Year
  Sex: Female

DRUGS (11)
  1. LOVAZA [Suspect]
     Dosage: 1G THREE TIMES PER DAY
     Route: 048
     Dates: start: 20090501
  2. SYNTHROID [Concomitant]
  3. MOBIC [Concomitant]
  4. MACROBID [Concomitant]
  5. ZESTRIL [Concomitant]
  6. HYDROCHLOROTHIAZIDE [Concomitant]
  7. ZOCOR [Concomitant]
  8. MESTINON [Concomitant]
  9. ASPIRIN [Concomitant]
  10. SPIRIVA [Concomitant]
  11. COSOPT [Concomitant]

REACTIONS (5)
  - DRUG INEFFECTIVE [None]
  - HYPERTENSION [None]
  - LOSS OF CONSCIOUSNESS [None]
  - OVERDOSE [None]
  - THERAPEUTIC RESPONSE UNEXPECTED [None]
